FAERS Safety Report 20961090 (Version 1)
Quarter: 2022Q2

REPORT INFORMATION
  Report Type: Spontaneous
  Country: PL (occurrence: PL)
  Receive Date: 20220615
  Receipt Date: 20220615
  Transmission Date: 20220721
  Serious: Yes (Other)
  Sender: FDA-Public Use
  Company Number: None

PATIENT
  Age: 36 Year
  Sex: Male
  Weight: 85 kg

DRUGS (2)
  1. GEMCITABINE [Suspect]
     Active Substance: GEMCITABINE
     Indication: Product used for unknown indication
     Dosage: STRENGTH: 1 GM
     Route: 041
     Dates: start: 20211124, end: 20211124
  2. ABRAXANE [Suspect]
     Active Substance: PACLITAXEL
     Indication: Product used for unknown indication
     Dosage: STRENGTH: 100 MG
     Route: 041
     Dates: start: 20211124, end: 20211124

REACTIONS (2)
  - Urinary tract inflammation [Unknown]
  - Anaemia [Unknown]

NARRATIVE: CASE EVENT DATE: 20211201
